FAERS Safety Report 9863514 (Version 2)
Quarter: 2014Q2

REPORT INFORMATION
  Report Type: Spontaneous
  Country: US (occurrence: US)
  Receive Date: 20140203
  Receipt Date: 20140402
  Transmission Date: 20141212
  Serious: No
  Sender: FDA-Public Use
  Company Number: US-TEVA-460574USA

PATIENT
  Age: 19 Year
  Sex: Female
  Weight: 73.55 kg

DRUGS (1)
  1. PLAN B ONE-STEP [Suspect]
     Indication: POST COITAL CONTRACEPTION
     Dosage: 1.5 MILLIGRAM DAILY;
     Route: 048
     Dates: start: 20140123, end: 20140123

REACTIONS (3)
  - Menstruation irregular [Recovered/Resolved]
  - Pelvic pain [Recovered/Resolved]
  - Inappropriate schedule of drug administration [Recovered/Resolved]
